FAERS Safety Report 8345603-7 (Version None)
Quarter: 2012Q2

REPORT INFORMATION
  Report Type: 
  Country: None (occurrence: None)
  Receive Date: 20120508
  Receipt Date: 20120503
  Transmission Date: 20120825
  Serious: Yes (Other)
  Sender: FDA-Public Use
  Company Number: ES-ROCHE-1030094

PATIENT
  Sex: Female

DRUGS (3)
  1. MABTHERA [Suspect]
     Dates: start: 20111015
  2. MABTHERA [Suspect]
     Indication: RHEUMATOID ARTHRITIS
     Dates: start: 20111001
  3. MABTHERA [Suspect]
     Route: 042
     Dates: start: 20080625, end: 20111015

REACTIONS (1)
  - BASAL CELL CARCINOMA [None]
